FAERS Safety Report 4642083-X (Version None)
Quarter: 2005Q2

REPORT INFORMATION
  Report Type: 
  Country: None (occurrence: None)
  Receive Date: 20050420
  Receipt Date: 20050407
  Transmission Date: 20051028
  Serious: Yes (Death)
  Sender: FDA-Public Use
  Company Number: 2005052957

PATIENT
  Age: 43 Year
  Sex: Female

DRUGS (5)
  1. GEODON [Suspect]
     Indication: ILL-DEFINED DISORDER
  2. BUPROPION HYDROCHLORIDE [Suspect]
     Indication: ILL-DEFINED DISORDER
  3. OLANZAPINE/FLUOXETINE HYDROCHLORIDE (FLUOXETINE HYDROCHLORIDE, OLANZAP [Suspect]
     Indication: ILL-DEFINED DISORDER
  4. MIRTAZAPINE [Suspect]
     Indication: ILL-DEFINED DISORDER
  5. OBETROL [Suspect]
     Indication: ILL-DEFINED DISORDER

REACTIONS (1)
  - SELF-MEDICATION [None]
